FAERS Safety Report 4962568-6 (Version None)
Quarter: 2006Q1

REPORT INFORMATION
  Report Type: 
  Country: None (occurrence: None)
  Receive Date: 20060201
  Receipt Date: 20051026
  Transmission Date: 20060701
  Serious: No
  Sender: FDA-Public Use
  Company Number: 2005PV004150

PATIENT
  Age: 83 Year
  Sex: Female
  Weight: 99.7913 kg

DRUGS (8)
  1. BYETTA [Suspect]
     Indication: DIABETES MELLITUS NON-INSULIN-DEPENDENT
     Dosage: 5 MCG;BID;SC
     Route: 058
     Dates: start: 20050901, end: 20051026
  2. PROTONIX [Concomitant]
  3. LEXAPRO [Concomitant]
  4. PRAVACHOL [Concomitant]
  5. PLAVIX [Concomitant]
  6. IMDUR [Concomitant]
  7. HUMULIN [Concomitant]
  8. NOVOLIN [Concomitant]

REACTIONS (2)
  - NAUSEA [None]
  - PAIN IN EXTREMITY [None]
